FAERS Safety Report 8247292 (Version 4)
Quarter: 2013Q4

REPORT INFORMATION
  Report Type: Spontaneous
  Country: DE (occurrence: DE)
  Receive Date: 20111116
  Receipt Date: 20131031
  Transmission Date: 20140711
  Serious: Yes (Hospitalization, Other)
  Sender: FDA-Public Use
  Company Number: DE-009507513-1111DEU00084

PATIENT
  Age: 62 Year
  Sex: Male
  Weight: 95 kg

DRUGS (10)
  1. JANUMET [Suspect]
     Indication: TYPE 2 DIABETES MELLITUS
     Dosage: 1000MG/50
     Route: 048
     Dates: start: 2011
  2. VELMETIA [Suspect]
     Indication: TYPE 2 DIABETES MELLITUS
     Dosage: 1000MG/50
     Route: 048
     Dates: start: 20110202, end: 2011
  3. METOPROLOL [Concomitant]
     Dosage: 50 MG, QD
     Route: 048
  4. RAMIPRIL [Concomitant]
     Dosage: 5 MG, BID
     Route: 048
  5. ASPIRIN [Concomitant]
     Dosage: 100 MG, QD
     Route: 048
  6. AMLODIPINE [Concomitant]
     Dosage: 5 MG, QD
     Route: 048
  7. FURORESE TABLETS [Concomitant]
     Dosage: 40 MG, QD
     Route: 048
  8. PANTOPRAZOLE [Concomitant]
     Dosage: 20 MG, QD
     Route: 048
  9. DOXAZOSIN MESYLATE [Concomitant]
     Dosage: 4 MG, QD
     Route: 048
  10. AMILORID COMP [Suspect]
     Route: 048

REACTIONS (13)
  - Hyponatraemia [Unknown]
  - Diabetic nephropathy [Unknown]
  - Oedema peripheral [Unknown]
  - Weight increased [Unknown]
  - Dyspnoea [Unknown]
  - Hypertensive crisis [Unknown]
  - Pyrexia [Unknown]
  - Stasis dermatitis [Unknown]
  - Melanocytic naevus [Unknown]
  - Gastrooesophageal reflux disease [Unknown]
  - Headache [Unknown]
  - Thrombocytosis [Unknown]
  - Joint swelling [Unknown]
